FAERS Safety Report 4527641-5 (Version None)
Quarter: 2004Q4

REPORT INFORMATION
  Report Type: 
  Country: None (occurrence: None)
  Receive Date: 20041215
  Receipt Date: 20040520
  Transmission Date: 20050328
  Serious: Yes (Hospitalization, Other)
  Sender: FDA-Public Use
  Company Number: US-BRISTOL-MYERS SQUIBB COMPANY-12592119

PATIENT
  Sex: Female

DRUGS (4)
  1. ESTRADIOL [Suspect]
     Indication: HORMONE REPLACEMENT THERAPY
     Dates: start: 19970913, end: 20020318
  2. ESTRACE [Suspect]
     Indication: HORMONE REPLACEMENT THERAPY
     Route: 067
     Dates: start: 19991220, end: 20020505
  3. PROVERA [Suspect]
     Indication: HORMONE REPLACEMENT THERAPY
     Dates: start: 19951213, end: 20020608
  4. CYCRIN [Suspect]
     Dates: start: 19970813, end: 19981215

REACTIONS (6)
  - BREAST CANCER [None]
  - BREAST CANCER FEMALE [None]
  - NASOPHARYNGITIS [None]
  - SCAR [None]
  - VULVOVAGINAL DRYNESS [None]
  - WEIGHT INCREASED [None]
